FAERS Safety Report 17425165 (Version 2)
Quarter: 2020Q1

REPORT INFORMATION
  Report Type: Spontaneous
  Country: US (occurrence: US)
  Receive Date: 20200217
  Receipt Date: 20200306
  Transmission Date: 20200409
  Serious: Yes (Hospitalization, Other)
  Sender: FDA-Public Use
  Company Number: US-GLAXOSMITHKLINE-US2020023449

PATIENT
  Sex: Female

DRUGS (2)
  1. FLAGYL [Concomitant]
     Active Substance: METRONIDAZOLE\METRONIDAZOLE HYDROCHLORIDE
     Indication: PRODUCT USED FOR UNKNOWN INDICATION
     Dosage: UNK
     Route: 065
  2. BENLYSTA [Suspect]
     Active Substance: BELIMUMAB
     Indication: SYSTEMIC LUPUS ERYTHEMATOSUS
     Dosage: UNK
     Route: 058

REACTIONS (13)
  - Seizure [Recovering/Resolving]
  - Ill-defined disorder [Recovered/Resolved]
  - Abdominal pain [Not Recovered/Not Resolved]
  - Spinal cord neoplasm [Not Recovered/Not Resolved]
  - Infection [Recovered/Resolved]
  - Drug ineffective [Unknown]
  - Tooth abscess [Recovered/Resolved]
  - Pyrexia [Recovered/Resolved]
  - Vomiting [Not Recovered/Not Resolved]
  - Pain [Not Recovered/Not Resolved]
  - Coagulopathy [Unknown]
  - Rash [Recovering/Resolving]
  - Faeces discoloured [Recovered/Resolved]
